FAERS Safety Report 18819793 (Version 1)
Quarter: 2021Q1

REPORT INFORMATION
  Report Type: Other
  Country: GB (occurrence: GB)
  Receive Date: 20210202
  Receipt Date: 20210202
  Transmission Date: 20210419
  Serious: Yes (Death, Hospitalization)
  Sender: FDA-Public Use
  Company Number: GB-AJANTA PHARMA USA INC.-2106157

PATIENT
  Age: 41 Year
  Sex: Female

DRUGS (1)
  1. RANOLAZINE (ANDA 210054) [Suspect]
     Active Substance: RANOLAZINE

REACTIONS (3)
  - Intentional overdose [Fatal]
  - Completed suicide [Fatal]
  - Loss of consciousness [Fatal]
